FAERS Safety Report 15136025 (Version 1)
Quarter: 2018Q3

REPORT INFORMATION
  Report Type: Spontaneous
  Country: US (occurrence: US)
  Receive Date: 20180712
  Receipt Date: 20180712
  Transmission Date: 20181010
  Serious: Yes (Hospitalization, Other)
  Sender: FDA-Public Use
  Company Number: US-AMGEN-USASP2018072495

PATIENT
  Age: 24 Year
  Sex: Female
  Weight: 57.14 kg

DRUGS (2)
  1. EPOGEN [Suspect]
     Active Substance: ERYTHROPOIETIN
     Indication: HAEMOGLOBIN DECREASED
     Dosage: 5000 UNIT, Q3WK
     Route: 065
     Dates: start: 2018
  2. SENSIPAR [Suspect]
     Active Substance: CINACALCET HYDROCHLORIDE
     Indication: HYPERPARATHYROIDISM SECONDARY
     Dosage: 30 MG, QD
     Route: 065

REACTIONS (5)
  - Blood calcium decreased [Recovered/Resolved]
  - Abortion spontaneous [Unknown]
  - Haemoglobin decreased [Unknown]
  - Maternal exposure during pregnancy [Unknown]
  - Treatment noncompliance [Unknown]

NARRATIVE: CASE EVENT DATE: 2018
